FAERS Safety Report 20056008 (Version 2)
Quarter: 2021Q4

REPORT INFORMATION
  Report Type: Spontaneous
  Country: EC (occurrence: EC)
  Receive Date: 20211111
  Receipt Date: 20211130
  Transmission Date: 20220303
  Serious: Yes (Other)
  Sender: FDA-Public Use
  Company Number: EC-MACLEODS PHARMACEUTICALS US LTD-MAC2021033298

PATIENT

DRUGS (1)
  1. DONEPEZIL [Suspect]
     Active Substance: DONEPEZIL
     Indication: Dementia Alzheimer^s type
     Dosage: 5 MILLIGRAM, QD (AT NIGHT-TIME)
     Route: 048

REACTIONS (2)
  - Foot deformity [Recovered/Resolved]
  - Muscle spasms [Recovered/Resolved]
